FAERS Safety Report 4607725-3 (Version None)
Quarter: 2005Q1

REPORT INFORMATION
  Report Type: 
  Country: None (occurrence: None)
  Receive Date: 20050310
  Receipt Date: 20050223
  Transmission Date: 20050727
  Serious: Yes (Hospitalization)
  Sender: FDA-Public Use
  Company Number: J081-002-001896

PATIENT
  Age: 65 Year
  Sex: Male
  Weight: 82 kg

DRUGS (7)
  1. ARICEPT [Suspect]
     Indication: DEMENTIA ALZHEIMER'S TYPE
     Dosage: 3 MG, 1 IN 1 D, ORAL; 5 MG, 1 IN 1 D, ORAL
     Route: 048
     Dates: start: 20040914, end: 20040927
  2. ARICEPT [Suspect]
     Indication: DEMENTIA ALZHEIMER'S TYPE
     Dosage: 3 MG, 1 IN 1 D, ORAL; 5 MG, 1 IN 1 D, ORAL
     Route: 048
     Dates: start: 20040928, end: 20041006
  3. METFORMIN HYDROCHLORIDE [Concomitant]
  4. BASEN OD (VOGLIBOSE) [Concomitant]
  5. DILTIAZEM HYDROCHLORIDE [Concomitant]
  6. LIPITOR [Concomitant]
  7. DIOVAN [Concomitant]

REACTIONS (7)
  - DIABETES MELLITUS INADEQUATE CONTROL [None]
  - DIZZINESS [None]
  - HEADACHE [None]
  - IIIRD NERVE PARALYSIS [None]
  - NAUSEA [None]
  - PITUITARY HAEMORRHAGE [None]
  - VOMITING [None]
